FAERS Safety Report 5874594-3 (Version None)
Quarter: 2008Q3

REPORT INFORMATION
  Report Type: 
  Country: None (occurrence: None)
  Receive Date: 20080905
  Receipt Date: 20080905
  Transmission Date: 20090109
  Serious: Yes (Hospitalization)
  Sender: FDA-Public Use
  Company Number: None

PATIENT
  Sex: Female
  Weight: 64 kg

DRUGS (2)
  1. TEMOZOLOMIDE [Suspect]
     Dosage: 3780 MG
  2. TEMOZOLOMIDE [Suspect]

REACTIONS (1)
  - THROMBOCYTOPENIA [None]
